FAERS Safety Report 9577866 (Version 1)
Quarter: 2013Q4

REPORT INFORMATION
  Report Type: Spontaneous
  Country: US (occurrence: US)
  Receive Date: 20131001
  Receipt Date: 20131001
  Transmission Date: 20140711
  Serious: Yes (Other)
  Sender: FDA-Public Use
  Company Number: US-AMGEN-USASP2013010330

PATIENT
  Age: 51 Year
  Sex: Male

DRUGS (2)
  1. ENBREL [Suspect]
     Indication: PSORIATIC ARTHROPATHY
     Dosage: 50 MG, QWK
     Dates: start: 2005
  2. ENBREL [Suspect]
     Indication: PSORIASIS

REACTIONS (8)
  - Infected skin ulcer [Recovered/Resolved]
  - Staphylococcal infection [Recovered/Resolved]
  - Neck pain [Not Recovered/Not Resolved]
  - Pain in jaw [Not Recovered/Not Resolved]
  - Arthralgia [Not Recovered/Not Resolved]
  - Back pain [Not Recovered/Not Resolved]
  - Localised infection [Recovered/Resolved]
  - Psoriasis [Recovered/Resolved]
